FAERS Safety Report 8788689 (Version 1)
Quarter: 2012Q4

REPORT INFORMATION
  Report Type: 
  Country: US (occurrence: US)
  Receive Date: 20120917
  Receipt Date: 20120917
  Transmission Date: 20130627
  Serious: Yes (Hospitalization, Other)
  Sender: FDA-Public Use
  Company Number: US-AMGEN-KDL147973

PATIENT
  Age: 69 Year
  Sex: Female

DRUGS (1)
  1. ENBREL [Suspect]
     Indication: RHEUMATOID ARTHRITIS
     Dosage: 25 mg, 2 times/wk
     Route: 058
     Dates: start: 20031031

REACTIONS (15)
  - Myocardial infarction [Recovered/Resolved]
  - Abdominal mass [Not Recovered/Not Resolved]
  - Psoriasis [Unknown]
  - Purulent discharge [Unknown]
  - Injection site reaction [Recovered/Resolved]
  - Injection site pain [Recovered/Resolved]
  - Depressed mood [Not Recovered/Not Resolved]
  - Abdominal wall disorder [Unknown]
  - Oesophageal stenosis [Not Recovered/Not Resolved]
  - Urinary tract infection [Recovered/Resolved]
  - Dementia [Not Recovered/Not Resolved]
  - Memory impairment [Not Recovered/Not Resolved]
  - Muscular weakness [Not Recovered/Not Resolved]
  - Cataract [Not Recovered/Not Resolved]
  - Limb operation [Recovered/Resolved]
